FAERS Safety Report 8422952-5 (Version None)
Quarter: 2012Q2

REPORT INFORMATION
  Report Type: 
  Country: None (occurrence: None)
  Receive Date: 20120608
  Receipt Date: 20120601
  Transmission Date: 20120825
  Serious: Yes (Hospitalization)
  Sender: FDA-Public Use
  Company Number: FR-GLAXOSMITHKLINE-B0805198A

PATIENT
  Sex: Male

DRUGS (8)
  1. CHLORAMINOPHENE [Concomitant]
     Route: 048
  2. BISOPROLOL FUMARATE AND HYDROCHLOROTHIAZIDE [Concomitant]
     Route: 065
  3. SOLU-MEDROL [Suspect]
     Indication: PREMEDICATION
     Route: 042
     Dates: start: 20120202, end: 20120202
  4. ACETAMINOPHEN [Suspect]
     Indication: PREMEDICATION
     Route: 048
     Dates: start: 20120202, end: 20120202
  5. ZANTAC [Suspect]
     Indication: PREMEDICATION
     Route: 065
     Dates: start: 20120202, end: 20120202
  6. MABTHERA [Suspect]
     Indication: WALDENSTROM'S MACROGLOBULINAEMIA
     Route: 042
     Dates: start: 20120202, end: 20120202
  7. IRBESARTAN AND HYDROCHLOROTHIAZIDE [Concomitant]
     Route: 065
  8. POLARAMINE [Suspect]
     Indication: PREMEDICATION
     Route: 065
     Dates: start: 20120202, end: 20120202

REACTIONS (7)
  - ANAPHYLACTIC SHOCK [None]
  - CHILLS [None]
  - PURPURA [None]
  - MALAISE [None]
  - HYPOTENSION [None]
  - THROMBOCYTOPENIA [None]
  - URTICARIA [None]
